FAERS Safety Report 24647375 (Version 1)
Quarter: 2024Q4

REPORT INFORMATION
  Report Type: Spontaneous
  Country: US (occurrence: None)
  Receive Date: 20241120
  Receipt Date: 20241120
  Transmission Date: 20250115
  Serious: Yes (Life-Threatening, Hospitalization)
  Sender: Public
  Company Number: None

PATIENT
  Age: 30 Year
  Sex: Female
  Weight: 90 kg

DRUGS (1)
  1. LILETTA [Suspect]
     Active Substance: LEVONORGESTREL
     Dates: start: 20230201, end: 20241114

REACTIONS (2)
  - Ectopic pregnancy [None]
  - Tubal rupture [None]

NARRATIVE: CASE EVENT DATE: 20241114
